FAERS Safety Report 13443278 (Version 1)
Quarter: 2017Q2

REPORT INFORMATION
  Report Type: Spontaneous
  Country: US (occurrence: US)
  Receive Date: 20170413
  Receipt Date: 20170413
  Transmission Date: 20170830
  Serious: No
  Sender: FDA-Public Use
  Company Number: None

PATIENT
  Age: 61 Year
  Sex: Female

DRUGS (1)
  1. IMATINIB 100MG RANBAXY [Suspect]
     Active Substance: IMATINIB
     Indication: PRODUCT USED FOR UNKNOWN INDICATION
     Route: 048
     Dates: start: 20170221, end: 20170330

REACTIONS (2)
  - Rash [None]
  - Therapy change [None]

NARRATIVE: CASE EVENT DATE: 20170330
